FAERS Safety Report 8631415 (Version 2)
Quarter: 2013Q2

REPORT INFORMATION
  Report Type: Spontaneous
  Country: US (occurrence: US)
  Receive Date: 20120622
  Receipt Date: 20130501
  Transmission Date: 20140414
  Serious: Yes (Death)
  Sender: FDA-Public Use
  Company Number: GXBR2012US001542

PATIENT
  Age: 52 Year
  Sex: Female

DRUGS (2)
  1. AZITHROMYCIN 250 MG TEVA, USA [Suspect]
     Dosage: UNK MG, UNK
     Dates: start: 20120416
  2. CARDIAC THERAPY [Suspect]
     Dosage: UNK DF, UNK

REACTIONS (1)
  - Sudden cardiac death [Fatal]
